FAERS Safety Report 25550900 (Version 1)
Quarter: 2025Q3

REPORT INFORMATION
  Report Type: Spontaneous
  Country: US (occurrence: US)
  Receive Date: 20250714
  Receipt Date: 20250714
  Transmission Date: 20251021
  Serious: No
  Sender: INTRA-CELLULAR THERAPIES
  Company Number: US-INTRA-CELLULAR THERAPIES, INC.-2025ICT00663

PATIENT

DRUGS (1)
  1. CAPLYTA [Suspect]
     Active Substance: LUMATEPERONE
     Dates: start: 20250331

REACTIONS (6)
  - Influenza like illness [Unknown]
  - Hypoaesthesia [Unknown]
  - Asthenia [Unknown]
  - Nausea [Unknown]
  - Dry mouth [Unknown]
  - Headache [Unknown]

NARRATIVE: CASE EVENT DATE: 20250331
